FAERS Safety Report 4400019-0 (Version None)
Quarter: 2004Q3

REPORT INFORMATION
  Report Type: 
  Country: None (occurrence: None)
  Receive Date: 20040714
  Receipt Date: 20040705
  Transmission Date: 20050211
  Serious: Yes (Life-Threatening)
  Sender: FDA-Public Use
  Company Number: 2003SE02289

PATIENT
  Age: 33 Year
  Sex: Female

DRUGS (2)
  1. ZOMIG [Suspect]
     Indication: MIGRAINE
     Dosage: 2.5 MG BID PO
     Route: 048
     Dates: start: 20030323
  2. TRINORDIOL [Suspect]
     Indication: CONTRACEPTION
     Dates: start: 20010501, end: 20030301

REACTIONS (7)
  - CEREBRAL HAEMATOMA [None]
  - CEREBRAL VENOUS THROMBOSIS [None]
  - DEPRESSED LEVEL OF CONSCIOUSNESS [None]
  - GRAND MAL CONVULSION [None]
  - HEADACHE [None]
  - MUSCLE CRAMP [None]
  - SUBARACHNOID HAEMORRHAGE [None]
